FAERS Safety Report 8604910-0 (Version None)
Quarter: 2012Q3

REPORT INFORMATION
  Report Type: 
  Country: None (occurrence: None)
  Receive Date: 20120820
  Receipt Date: 20120810
  Transmission Date: 20120928
  Serious: Yes (Hospitalization)
  Sender: FDA-Public Use
  Company Number: US-ASTELLAS-2012US006940

PATIENT

DRUGS (9)
  1. ENBREL [Concomitant]
     Indication: SARCOIDOSIS
     Dosage: 1 DF, WEEKLY
     Route: 058
     Dates: start: 20120401
  2. OMEPRAZOLE [Concomitant]
     Indication: GASTROOESOPHAGEAL REFLUX DISEASE
     Dosage: 80 MG, BID
     Route: 048
  3. SINGULAIR [Concomitant]
     Indication: HYPERSENSITIVITY
     Dosage: 10 MG, UID/QD
     Route: 048
  4. FOLIC ACID [Concomitant]
     Indication: SARCOIDOSIS
     Dosage: 1 MG, UID/QD
     Route: 048
     Dates: start: 20110801
  5. HYDROXYCHLOR [Concomitant]
     Indication: HYPERTENSION
     Dosage: 200 MG, BID
     Route: 048
  6. PROTOPIC [Suspect]
     Indication: DERMATITIS ATOPIC
     Dosage: 0.03 %, BID
     Route: 061
     Dates: start: 20110401
  7. PROTOPIC [Suspect]
     Dosage: 0.1 %, BID
     Route: 061
     Dates: start: 20110401
  8. METHOTREXATE [Concomitant]
     Indication: SARCOIDOSIS
     Dosage: 2.5 MG, WEEKLY
     Route: 048
     Dates: start: 20110801
  9. PREDNISONE TAB [Concomitant]
     Indication: PRODUCT USED FOR UNKNOWN INDICATION
     Dosage: 7.5 MG, UID/QD
     Route: 048

REACTIONS (3)
  - UTERINE LEIOMYOMA [None]
  - OVERDOSE [None]
  - GASTRIC DISORDER [None]
